FAERS Safety Report 24795078 (Version 2)
Quarter: 2025Q3

REPORT INFORMATION
  Report Type: Spontaneous
  Country: JP (occurrence: JP)
  Receive Date: 20241231
  Receipt Date: 20250810
  Transmission Date: 20251020
  Serious: Yes (Other)
  Sender: ALEXION PHARMACEUTICALS
  Company Number: JP-ASTRAZENECA-240147009_013120_P_1

PATIENT
  Age: 6 Decade
  Sex: Female

DRUGS (2)
  1. DURVALUMAB [Suspect]
     Active Substance: DURVALUMAB
  2. TREMELIMUMAB [Suspect]
     Active Substance: TREMELIMUMAB

REACTIONS (1)
  - Immune-mediated hepatic disorder [Recovered/Resolved]
